FAERS Safety Report 16299654 (Version 2)
Quarter: 2019Q4

REPORT INFORMATION
  Report Type: Spontaneous
  Country: US (occurrence: US)
  Receive Date: 20190510
  Receipt Date: 20191111
  Transmission Date: 20200122
  Serious: Yes (Death, Other)
  Sender: FDA-Public Use
  Company Number: US-ASTRAZENECA-2019SE63550

PATIENT
  Sex: Female

DRUGS (34)
  1. DIGOXIN. [Concomitant]
     Active Substance: DIGOXIN
  2. ATENOLOL. [Concomitant]
     Active Substance: ATENOLOL
  3. KLOR-CON [Concomitant]
     Active Substance: POTASSIUM CHLORIDE
  4. NEXIUM [Suspect]
     Active Substance: ESOMEPRAZOLE MAGNESIUM
     Route: 048
  5. HYDRALAZINE [Concomitant]
     Active Substance: HYDRALAZINE HYDROCHLORIDE
  6. NEXIUM [Suspect]
     Active Substance: ESOMEPRAZOLE MAGNESIUM
     Route: 048
  7. SIMVASTATIN. [Concomitant]
     Active Substance: SIMVASTATIN
  8. NAMENDA [Concomitant]
     Active Substance: MEMANTINE HYDROCHLORIDE
  9. XALATAN [Concomitant]
     Active Substance: LATANOPROST
  10. DITROPAN [Concomitant]
     Active Substance: OXYBUTYNIN CHLORIDE
  11. DIGOXIN. [Concomitant]
     Active Substance: DIGOXIN
  12. WARFARIN [Concomitant]
     Active Substance: WARFARIN
  13. ALBUTEROL. [Concomitant]
     Active Substance: ALBUTEROL
  14. BIAXIN [Concomitant]
     Active Substance: CLARITHROMYCIN
  15. CARTIA [Concomitant]
  16. COREG [Concomitant]
     Active Substance: CARVEDILOL
  17. TARKA [Concomitant]
     Active Substance: TRANDOLAPRIL\VERAPAMIL HYDROCHLORIDE
  18. AZOPT [Concomitant]
     Active Substance: BRINZOLAMIDE
  19. LANTUS [Concomitant]
     Active Substance: INSULIN GLARGINE
  20. ISOSORB [Concomitant]
  21. HUMULIN NOS [Concomitant]
     Active Substance: INSULIN HUMAN
  22. NEXIUM [Suspect]
     Active Substance: ESOMEPRAZOLE MAGNESIUM
     Route: 048
     Dates: start: 20071024
  23. NIFEDIPINE. [Concomitant]
     Active Substance: NIFEDIPINE
  24. FUROSEMIDE. [Concomitant]
     Active Substance: FUROSEMIDE
  25. AMLODIPINE [Concomitant]
     Active Substance: AMLODIPINE BESYLATE
  26. ACTOS [Concomitant]
     Active Substance: PIOGLITAZONE HYDROCHLORIDE
  27. CAPTOPRIL. [Concomitant]
     Active Substance: CAPTOPRIL
  28. LEVAQUIN [Concomitant]
     Active Substance: LEVOFLOXACIN
  29. NEXIUM [Suspect]
     Active Substance: ESOMEPRAZOLE MAGNESIUM
     Route: 048
     Dates: start: 20071123
  30. PREVACID [Suspect]
     Active Substance: LANSOPRAZOLE
     Route: 065
  31. AVANDIA [Concomitant]
     Active Substance: ROSIGLITAZONE MALEATE
  32. ZOCOR [Concomitant]
     Active Substance: SIMVASTATIN
  33. DIGOXIN. [Concomitant]
     Active Substance: DIGOXIN
  34. PROTONIX [Concomitant]
     Active Substance: PANTOPRAZOLE SODIUM

REACTIONS (3)
  - Renal failure [Unknown]
  - Chronic kidney disease [Unknown]
  - End stage renal disease [Fatal]
